FAERS Safety Report 6880747-8 (Version None)
Quarter: 2010Q3

REPORT INFORMATION
  Report Type: 
  Country: None (occurrence: None)
  Receive Date: 20100728
  Receipt Date: 20100723
  Transmission Date: 20110219
  Serious: Yes (Hospitalization)
  Sender: FDA-Public Use
  Company Number: JP-BAYER-200915380BYL

PATIENT
  Age: 73 Year
  Sex: Male
  Weight: 62 kg

DRUGS (12)
  1. NEXAVAR [Suspect]
     Indication: HEPATIC NEOPLASM MALIGNANT
     Dosage: TOTAL DAILY DOSE: 400 MG  UNIT DOSE: 200 MG
     Route: 048
     Dates: start: 20091219, end: 20091222
  2. EVIPROSTAT DB [Concomitant]
     Route: 048
     Dates: start: 20090101, end: 20100119
  3. LENDORMIN [Concomitant]
     Route: 048
     Dates: start: 20090101
  4. THEO-DUR [Concomitant]
     Route: 048
     Dates: start: 20090407, end: 20100119
  5. MUCOSTA [Concomitant]
     Route: 048
     Dates: start: 20090713
  6. RABEPRAZOLE SODIUM [Concomitant]
     Route: 048
     Dates: start: 20090509
  7. URSO 250 [Concomitant]
     Route: 048
     Dates: start: 20090928
  8. GLYCYRON [Concomitant]
     Route: 048
     Dates: start: 20091214
  9. LIVACT [Concomitant]
     Route: 048
     Dates: start: 20090914, end: 20100119
  10. ALDACTONE [Concomitant]
     Route: 048
     Dates: start: 20091219
  11. UREPEARL [Concomitant]
     Route: 061
     Dates: start: 20091219
  12. CALORYL [Concomitant]
     Route: 048
     Dates: start: 20090803, end: 20100119

REACTIONS (2)
  - HEPATIC FUNCTION ABNORMAL [None]
  - HYPERAMMONAEMIA [None]
